FAERS Safety Report 9089690 (Version 4)
Quarter: 2014Q1

REPORT INFORMATION
  Report Type: Report from Study
  Country: AU (occurrence: AU)
  Receive Date: 20130131
  Receipt Date: 20140123
  Transmission Date: 20141002
  Serious: Yes (Hospitalization, Disabling)
  Sender: FDA-Public Use
  Company Number: AU-ROCHE-1186150

PATIENT
  Age: 62 Year
  Sex: Female

DRUGS (3)
  1. ACTEMRA [Suspect]
     Indication: RHEUMATOID ARTHRITIS
     Route: 042
     Dates: start: 20110803, end: 20131122
  2. ACTEMRA [Suspect]
     Route: 042
     Dates: start: 20110930
  3. ACTEMRA [Suspect]
     Route: 042
     Dates: start: 20131219

REACTIONS (2)
  - Skin ulcer [Unknown]
  - Cellulitis [Not Recovered/Not Resolved]
